FAERS Safety Report 7691053-6 (Version None)
Quarter: 2011Q3

REPORT INFORMATION
  Report Type: 
  Country: None (occurrence: None)
  Receive Date: 20110818
  Receipt Date: 20110815
  Transmission Date: 20111222
  Serious: No
  Sender: FDA-Public Use
  Company Number: US-PFIZER INC-2011187280

PATIENT
  Sex: Female

DRUGS (2)
  1. PREMPRO [Suspect]
     Dosage: 0.625/2.5, DAILY
     Dates: start: 20060101, end: 20110101
  2. VITAMIN TAB [Concomitant]
     Dosage: UNK

REACTIONS (10)
  - DYSPNOEA [None]
  - ANXIETY [None]
  - INSOMNIA [None]
  - HOT FLUSH [None]
  - FLUID RETENTION [None]
  - FATIGUE [None]
  - WEIGHT INCREASED [None]
  - LETHARGY [None]
  - ASTHENIA [None]
  - LOSS OF LIBIDO [None]
